FAERS Safety Report 12111738 (Version 4)
Quarter: 2016Q3

REPORT INFORMATION
  Report Type: Report from Study
  Country: FR (occurrence: FR)
  Receive Date: 20160224
  Receipt Date: 20160720
  Transmission Date: 20161109
  Serious: Yes (Other)
  Sender: FDA-Public Use
  Company Number: FR-GILEAD-2016-0198845

PATIENT
  Age: 52 Year
  Sex: Male
  Weight: 74 kg

DRUGS (7)
  1. SOFOSBUVIR [Suspect]
     Active Substance: SOFOSBUVIR
     Dosage: 400 MG, QD
     Route: 065
     Dates: start: 20160212
  2. RIBAVIRIN. [Concomitant]
     Active Substance: RIBAVIRIN
     Indication: HEPATITIS C
     Dosage: 1000 MG, QD
     Route: 065
     Dates: start: 20160127, end: 20160209
  3. RIBAVIRIN. [Concomitant]
     Active Substance: RIBAVIRIN
     Dosage: 1000 MG, QD
     Route: 065
     Dates: start: 20160212
  4. SUBUTEX [Concomitant]
     Active Substance: BUPRENORPHINE HYDROCHLORIDE
     Indication: DRUG WITHDRAWAL SYNDROME
     Dosage: 8 MG, QD
     Route: 065
  5. SOFOSBUVIR [Suspect]
     Active Substance: SOFOSBUVIR
     Indication: HEPATITIS C
     Dosage: 400 MG, BID
     Route: 065
     Dates: start: 20160127, end: 20160209
  6. DACLATASVIR. [Suspect]
     Active Substance: DACLATASVIR
     Indication: HEPATITIS C
     Dosage: 2 DF, QD
     Route: 065
     Dates: start: 20160127, end: 20160209
  7. DACLATASVIR. [Suspect]
     Active Substance: DACLATASVIR
     Dosage: 60 MG, QD
     Route: 065
     Dates: start: 20160212

REACTIONS (4)
  - Overdose [Recovered/Resolved]
  - Hypertensive crisis [Recovered/Resolved]
  - Tremor [Recovered/Resolved]
  - Drug administration error [Recovered/Resolved]

NARRATIVE: CASE EVENT DATE: 20160210
